FAERS Safety Report 19711239 (Version 2)
Quarter: 2021Q3

REPORT INFORMATION
  Report Type: Spontaneous
  Country: CA (occurrence: CA)
  Receive Date: 20210817
  Receipt Date: 20210906
  Transmission Date: 20211014
  Serious: Yes (Other)
  Sender: FDA-Public Use
  Company Number: CA-TAKEDA-2021TUS049925

PATIENT
  Age: 29 Year
  Sex: Female

DRUGS (6)
  1. MIDAZOLAM. [Concomitant]
     Active Substance: MIDAZOLAM
     Dosage: 1 UNK
  2. ANTIOXIDANT [Concomitant]
     Active Substance: UNSPECIFIED INGREDIENT
  3. KETAMIN [Concomitant]
     Active Substance: KETAMINE
  4. HYDROMORPHONE [Concomitant]
     Active Substance: HYDROMORPHONE
  5. ALBUMIN [Concomitant]
     Active Substance: ALBUMIN HUMAN
     Indication: PRODUCT USED FOR UNKNOWN INDICATION
     Dosage: 100 CC PER HR CONTINUOUS INFUSION
     Route: 065
     Dates: start: 20210729, end: 20210729
  6. GAMMAGARD LIQUID [Suspect]
     Active Substance: HUMAN IMMUNOGLOBULIN G
     Indication: PRODUCT USED FOR UNKNOWN INDICATION
     Dosage: 20 GRAM
     Route: 065
     Dates: start: 20210729, end: 20210729

REACTIONS (4)
  - Blood pressure increased [Recovering/Resolving]
  - Infusion related reaction [Unknown]
  - Pyrexia [Recovering/Resolving]
  - Tachycardia [Recovering/Resolving]

NARRATIVE: CASE EVENT DATE: 20210729
